FAERS Safety Report 4976108-9 (Version None)
Quarter: 2006Q2

REPORT INFORMATION
  Report Type: 
  Country: None (occurrence: None)
  Receive Date: 20060411
  Receipt Date: 20060327
  Transmission Date: 20061013
  Serious: Yes (Other)
  Sender: FDA-Public Use
  Company Number: 2006S1002632

PATIENT
  Sex: Female

DRUGS (1)
  1. KETOCONAZOLE [Suspect]
     Indication: RASH
     Dosage: 200 MG;ORAL
     Route: 048

REACTIONS (4)
  - HEPATIC ENZYME INCREASED [None]
  - OEDEMA MOUTH [None]
  - RASH [None]
  - SWELLING FACE [None]
